FAERS Safety Report 8218848-4 (Version None)
Quarter: 2012Q1

REPORT INFORMATION
  Report Type: 
  Country: None (occurrence: None)
  Receive Date: 20120319
  Receipt Date: 20120314
  Transmission Date: 20120608
  Serious: Yes (Life-Threatening, Hospitalization, Other)
  Sender: FDA-Public Use
  Company Number: PHHY2012DE022729

PATIENT
  Age: 36 Year
  Sex: Female

DRUGS (5)
  1. TEGRETOL [Suspect]
     Dosage: 400 MG DAILY
     Route: 048
     Dates: start: 20100223, end: 20100224
  2. VENLAFAXINE HYDROCHLORIDE [Concomitant]
     Dosage: 150 MG, UNK
     Route: 048
     Dates: start: 20100224
  3. CLONAZEPAM [Concomitant]
     Dosage: 2.5 MG, UNK
     Route: 048
     Dates: start: 20100223, end: 20100224
  4. TIAPRIDEX [Concomitant]
     Dosage: 400 MG, UNK
     Route: 048
     Dates: start: 20100223, end: 20100224
  5. TEGRETOL [Concomitant]
     Dosage: 200 MG, UNK
     Route: 048
     Dates: start: 20100223

REACTIONS (7)
  - SWOLLEN TONGUE [None]
  - PHARYNGEAL OEDEMA [None]
  - DYSPNOEA [None]
  - HYPERSENSITIVITY [None]
  - ANAPHYLACTIC REACTION [None]
  - SPEECH DISORDER [None]
  - OBSTRUCTIVE AIRWAYS DISORDER [None]
